FAERS Safety Report 6656010-7 (Version None)
Quarter: 2010Q1

REPORT INFORMATION
  Report Type: 
  Country: None (occurrence: None)
  Receive Date: 20100329
  Receipt Date: 20100319
  Transmission Date: 20100710
  Serious: Yes (Death, Hospitalization, Other)
  Sender: FDA-Public Use
  Company Number: US-PFIZER INC-2010006905

PATIENT
  Sex: Male
  Weight: 96.599 kg

DRUGS (11)
  1. CAMPTOSAR [Suspect]
     Indication: PANCREATIC CARCINOMA
     Dosage: 250 MG
     Route: 042
     Dates: start: 20091027
  2. CAMPTOSAR [Suspect]
     Dosage: 248 MG
     Dates: start: 20091106
  3. CAMPTOSAR [Suspect]
     Dosage: 198 MG
     Dates: start: 20091201
  4. ARIXTRA [Concomitant]
     Dosage: 7.5 MG
     Route: 058
     Dates: start: 20091027, end: 20091029
  5. NORMAL SALINE [Concomitant]
  6. LEUCOVORIN CALCIUM [Concomitant]
     Dosage: 40 MG
     Dates: start: 20090925
  7. FLUOROURACIL [Concomitant]
     Dosage: 1000 MG
     Dates: start: 20090925
  8. ARANESP [Concomitant]
     Dosage: UNK
     Dates: start: 20091103
  9. ARANESP [Concomitant]
     Dosage: 200 MG
     Dates: start: 20091106
  10. NEUPOGEN [Concomitant]
     Dosage: 480 MG
     Dates: start: 20091103, end: 20091105
  11. NEULASTA [Concomitant]
     Dosage: 6  MG
     Dates: start: 20091202

REACTIONS (6)
  - ANAEMIA [None]
  - DEATH [None]
  - GASTROINTESTINAL HAEMORRHAGE [None]
  - HYPOTENSION [None]
  - NEUTROPENIA [None]
  - SEPTIC SHOCK [None]
